FAERS Safety Report 19115736 (Version 4)
Quarter: 2021Q2

REPORT INFORMATION
  Report Type: Spontaneous
  Country: ES (occurrence: ES)
  Receive Date: 20210409
  Receipt Date: 20210602
  Transmission Date: 20210717
  Serious: Yes (Other)
  Sender: FDA-Public Use
  Company Number: ES-PFIZER INC-2021061175

PATIENT
  Age: 68 Year
  Sex: Female

DRUGS (2)
  1. COMIRNATY [Concomitant]
     Active Substance: TOZINAMERAN
     Indication: COVID-19 IMMUNISATION
     Dosage: 1ST DOSE, SINGLE
  2. EPANUTIN [Suspect]
     Active Substance: PHENYTOIN SODIUM
     Indication: CRANIOCEREBRAL INJURY
     Dosage: 400 MG, DAILY

REACTIONS (7)
  - Off label use [Unknown]
  - Intentional product misuse [Unknown]
  - Fear [Unknown]
  - Drowning [Unknown]
  - Drug effective for unapproved indication [Unknown]
  - Nervousness [Unknown]
  - Insomnia [Unknown]
